FAERS Safety Report 6237343-5 (Version None)
Quarter: 2009Q2

REPORT INFORMATION
  Report Type: 
  Country: None (occurrence: None)
  Receive Date: 20090619
  Receipt Date: 20090609
  Transmission Date: 20091009
  Serious: Yes (Hospitalization, Other)
  Sender: FDA-Public Use
  Company Number: PHHY2009BR22923

PATIENT
  Sex: Female

DRUGS (10)
  1. EXELON [Suspect]
     Indication: DEMENTIA ALZHEIMER'S TYPE
     Dosage: 1.5 MG, BID
     Route: 048
  2. EXELON [Suspect]
     Dosage: 3 MG, BID
     Route: 048
     Dates: start: 20020101
  3. EXELON [Suspect]
     Dosage: 4.5 MG, BID
     Route: 048
  4. EXELON [Suspect]
     Dosage: 3 MG, BID
     Route: 048
     Dates: start: 20020101
  5. MELLARIL [Concomitant]
     Indication: AGITATION
     Dosage: UNK
     Route: 048
     Dates: end: 20090501
  6. MEMANTINE HCL [Concomitant]
     Indication: DEMENTIA ALZHEIMER'S TYPE
     Dosage: 10 MG, BID
     Route: 048
  7. OMEPRAZOLE [Concomitant]
     Dosage: 20 MG, QD
     Route: 048
  8. MELOXICAM [Concomitant]
     Indication: PAIN
     Dosage: 7.5 MG, PRN
     Route: 048
     Dates: start: 20090609
  9. TRAZODONE HYDROCHLORIDE [Concomitant]
     Indication: AGITATION
     Dosage: 50 MG, AT NIGHT
     Dates: start: 20090501
  10. CHONDROITIN SODIUM SULFATE W/GLUCOSAMINE HCL [Concomitant]
     Indication: OSTEOARTHRITIS

REACTIONS (12)
  - ABNORMAL BEHAVIOUR [None]
  - AGITATION [None]
  - AKINESIA [None]
  - ANXIETY [None]
  - ARTHRALGIA [None]
  - DEPRESSION [None]
  - DISORIENTATION [None]
  - HEADACHE [None]
  - HYPERTENSION [None]
  - NAUSEA [None]
  - PAIN IN EXTREMITY [None]
  - SCREAMING [None]
